FAERS Safety Report 20721361 (Version 1)
Quarter: 2022Q2

REPORT INFORMATION
  Report Type: Spontaneous
  Country: US (occurrence: None)
  Receive Date: 20220416
  Receipt Date: 20220416
  Transmission Date: 20220720
  Serious: No
  Sender: FDA-Public Use
  Company Number: None

PATIENT
  Age: 42 Year
  Sex: Female
  Weight: 73.8 kg

DRUGS (4)
  1. BUPROPION HYDROCHLORIDE EXTENDED RELEASE [Suspect]
     Active Substance: BUPROPION HYDROCHLORIDE
     Indication: Mood swings
     Dosage: OTHER QUANTITY : 1 TABLET(S);?FREQUENCY : DAILY;?
     Route: 048
     Dates: start: 20220411, end: 20220416
  2. Bupropion Hydrochloride ER XL Tab 150MG [Concomitant]
  3. ETHINYL ESTRADIOL\ETONOGESTREL [Concomitant]
     Active Substance: ETHINYL ESTRADIOL\ETONOGESTREL
  4. Pristiq (generic - brand did not change) [Concomitant]

REACTIONS (5)
  - Product substitution issue [None]
  - Drug ineffective [None]
  - Mood altered [None]
  - Emotional disorder [None]
  - Anger [None]

NARRATIVE: CASE EVENT DATE: 20220416
